FAERS Safety Report 13569527 (Version 6)
Quarter: 2017Q3

REPORT INFORMATION
  Report Type: Spontaneous
  Country: US (occurrence: US)
  Receive Date: 20170522
  Receipt Date: 20170825
  Transmission Date: 20171127
  Serious: Yes (Death, Hospitalization, Other)
  Sender: FDA-Public Use
  Company Number: US-ELI_LILLY_AND_COMPANY-US201705005957

PATIENT
  Age: 44 Year
  Sex: Female
  Weight: 58.5 kg

DRUGS (9)
  1. AMBRISENTAN [Suspect]
     Active Substance: AMBRISENTAN
     Indication: PULMONARY HYPERTENSION
     Dosage: 10 MG, DAILY
     Route: 048
     Dates: start: 20130114
  2. UPTRAVI [Concomitant]
     Active Substance: SELEXIPAG
     Indication: PRODUCT USED FOR UNKNOWN INDICATION
     Dosage: UNK UNK, UNKNOWN
     Route: 065
     Dates: end: 201612
  3. FLOLAN [Concomitant]
     Active Substance: EPOPROSTENOL SODIUM
  4. OXYGEN. [Concomitant]
     Active Substance: OXYGEN
     Indication: PRODUCT USED FOR UNKNOWN INDICATION
     Dosage: UNK, UNKNOWN
     Route: 065
  5. ANAKINRA [Concomitant]
     Active Substance: ANAKINRA
  6. ADCIRCA [Suspect]
     Active Substance: TADALAFIL
     Indication: PULMONARY HYPERTENSION
     Dosage: UNK, UNKNOWN
     Route: 048
     Dates: start: 2014
  7. OXYGEN. [Concomitant]
     Active Substance: OXYGEN
     Dosage: 6 L WITH EXERTION
     Route: 065
  8. METHYLPREDISOLONE [Concomitant]
     Active Substance: METHYLPREDNISOLONE
  9. LASIX [Concomitant]
     Active Substance: FUROSEMIDE

REACTIONS (7)
  - Death [Fatal]
  - Right ventricular failure [Not Recovered/Not Resolved]
  - Pericardial effusion [Unknown]
  - Exercise tolerance decreased [Not Recovered/Not Resolved]
  - Aphasia [Unknown]
  - Oxygen consumption increased [Unknown]
  - Chest discomfort [Unknown]

NARRATIVE: CASE EVENT DATE: 20170505
